FAERS Safety Report 9931836 (Version 1)
Quarter: 2014Q1

REPORT INFORMATION
  Report Type: Spontaneous
  Country: US (occurrence: None)
  Receive Date: 20140227
  Receipt Date: 20140227
  Transmission Date: 20141002
  Serious: No
  Sender: FDA-Public Use
  Company Number: None

PATIENT
  Age: 56 Year
  Sex: Female
  Weight: 110.68 kg

DRUGS (1)
  1. DULOXETINE 60 MG TEVA [Suspect]
     Indication: ANALGESIC THERAPY
     Route: 048
     Dates: start: 20140101, end: 20140226

REACTIONS (4)
  - Product substitution issue [None]
  - Depression [None]
  - Arthralgia [None]
  - Product formulation issue [None]
